FAERS Safety Report 9214537 (Version 4)
Quarter: 2014Q2

REPORT INFORMATION
  Report Type: Spontaneous
  Country: US (occurrence: US)
  Receive Date: 20130405
  Receipt Date: 20140630
  Transmission Date: 20141212
  Serious: Yes (Death, Hospitalization, Other)
  Sender: FDA-Public Use
  Company Number: PHEH2013US007684

PATIENT
  Age: 58 Year
  Sex: Male

DRUGS (2)
  1. FTY 720 [Suspect]
     Indication: MULTIPLE SCLEROSIS
     Dosage: 0.5 MG, QD
     Route: 048
     Dates: start: 20111223, end: 20130101
  2. CORTICOSTEROIDS [Concomitant]
     Indication: MULTIPLE SCLEROSIS

REACTIONS (10)
  - Bronchopneumonia [Fatal]
  - Respiratory failure [Fatal]
  - Dyspnoea [Fatal]
  - Cardiac arrest [Fatal]
  - Glioblastoma [Not Recovered/Not Resolved]
  - Generalised tonic-clonic seizure [Not Recovered/Not Resolved]
  - Lymphoproliferative disorder [Not Recovered/Not Resolved]
  - Rash [Recovered/Resolved]
  - Blister [Not Recovered/Not Resolved]
  - Scab [Not Recovered/Not Resolved]
